FAERS Safety Report 5729836-1 (Version None)
Quarter: 2008Q2

REPORT INFORMATION
  Report Type: 
  Country: None (occurrence: None)
  Receive Date: 20080501
  Receipt Date: 20080421
  Transmission Date: 20081010
  Serious: Yes (Death, Life-Threatening, Hospitalization)
  Sender: FDA-Public Use
  Company Number: 000739

PATIENT
  Age: 58 Year
  Sex: Male

DRUGS (6)
  1. BUSULFEX [Suspect]
     Indication: STEM CELL TRANSPLANT
     Dosage: 33.2 ML INTRAVENOUS; 16.6 ML INTRAVENOUS
     Route: 042
     Dates: start: 20071025, end: 20071025
  2. BUSULFEX [Suspect]
     Indication: STEM CELL TRANSPLANT
     Dosage: 33.2 ML INTRAVENOUS; 16.6 ML INTRAVENOUS
     Route: 042
     Dates: start: 20071026, end: 20071026
  3. FLUDARABINE PHOSPHATE [Concomitant]
  4. MELPHALAN (MELPHALAN) [Concomitant]
  5. VALPROATE SODIUM [Concomitant]
  6. METHOTREXATE [Concomitant]

REACTIONS (10)
  - ANOREXIA [None]
  - BONE MARROW TRANSPLANT [None]
  - CEREBRAL HAEMORRHAGE [None]
  - DIARRHOEA [None]
  - MALAISE [None]
  - MULTI-ORGAN FAILURE [None]
  - PNEUMONIA [None]
  - SEPSIS [None]
  - SHOCK [None]
  - VOMITING [None]
